FAERS Safety Report 17237253 (Version 2)
Quarter: 2020Q1

REPORT INFORMATION
  Report Type: Spontaneous
  Country: US (occurrence: US)
  Receive Date: 20200106
  Receipt Date: 20200110
  Transmission Date: 20200409
  Serious: Yes (Death)
  Sender: FDA-Public Use
  Company Number: US-PFIZER INC-2020000098

PATIENT
  Age: 45 Year
  Sex: Female

DRUGS (2)
  1. MUROMONAB-CD3 [Suspect]
     Active Substance: MUROMONAB-CD3
     Indication: TRANSPLANT REJECTION
     Dosage: UNK
  2. METHYLPREDNISOLONE SODIUM SUCCINATE. [Suspect]
     Active Substance: METHYLPREDNISOLONE SODIUM SUCCINATE
     Dosage: UNK (HIGH-DOSE)
     Route: 042

REACTIONS (5)
  - Complications of transplant surgery [Fatal]
  - Seizure [Fatal]
  - Microsporidia infection [Fatal]
  - Pyrexia [Fatal]
  - Keratitis [Fatal]
